FAERS Safety Report 4640437-9 (Version None)
Quarter: 2005Q2

REPORT INFORMATION
  Report Type: 
  Country: None (occurrence: None)
  Receive Date: 20050419
  Receipt Date: 20050408
  Transmission Date: 20051028
  Serious: Yes (Other)
  Sender: FDA-Public Use
  Company Number: 2005022348

PATIENT
  Age: 36 Year
  Sex: Male

DRUGS (3)
  1. BEXTRA [Suspect]
     Indication: FACET JOINT SYNDROME
     Dosage: 10 MG (10 MG, 1 IN 1 D), ORAL
     Route: 048
     Dates: start: 20041201
  2. VICODIN [Concomitant]
  3. CYCLOBENZAPRINE HYDROCHLORIDE [Concomitant]

REACTIONS (1)
  - STEVENS-JOHNSON SYNDROME [None]
